FAERS Safety Report 18152366 (Version 1)
Quarter: 2020Q3

REPORT INFORMATION
  Report Type: Spontaneous
  Country: IT (occurrence: IT)
  Receive Date: 20200814
  Receipt Date: 20200814
  Transmission Date: 20201103
  Serious: Yes (Life-Threatening, Hospitalization)
  Sender: FDA-Public Use
  Company Number: IT-MYLANLABS-2020M1071865

PATIENT
  Age: 29 Year
  Sex: Female

DRUGS (25)
  1. PHENOBARBITAL. [Suspect]
     Active Substance: PHENOBARBITAL
     Indication: SEIZURE
     Dosage: FULL DOSAGE
     Route: 065
  2. LEVETIRACETAM. [Suspect]
     Active Substance: LEVETIRACETAM
     Indication: MOVEMENT DISORDER
  3. TOPIRAMATE. [Suspect]
     Active Substance: TOPIRAMATE
     Indication: MOVEMENT DISORDER
  4. IMMUNOGLOBULIN                     /07494701/ [Suspect]
     Active Substance: IMMUNE GLOBULIN NOS
     Dosage: REPEATED ADMINISTRATION AFTER INTUBATION; 0.2 G/KG/ DAY
     Route: 042
  5. PHENYTOIN. [Suspect]
     Active Substance: PHENYTOIN
     Indication: MOVEMENT DISORDER
  6. TOPIRAMATE. [Suspect]
     Active Substance: TOPIRAMATE
     Indication: SEIZURE
     Dosage: FULL DOSAGE
     Route: 065
  7. METHYLPREDNISOLONE. [Suspect]
     Active Substance: METHYLPREDNISOLONE
     Indication: ENCEPHALITIS AUTOIMMUNE
     Dosage: 1 GRAM, QD BOLUS ADMINISTRATION
     Route: 050
  8. PHENOBARBITAL. [Suspect]
     Active Substance: PHENOBARBITAL
     Indication: MOVEMENT DISORDER
  9. PROPOFOL. [Concomitant]
     Active Substance: PROPOFOL
     Indication: SEDATION
     Dosage: INFUSION ADMINISTRATION
     Route: 050
  10. CLOBAZAM. [Suspect]
     Active Substance: CLOBAZAM
     Indication: SEIZURE
     Dosage: FULL DOSAGE
     Route: 065
  11. MIDAZOLAM. [Concomitant]
     Active Substance: MIDAZOLAM
     Indication: SEDATION
     Dosage: INFUSION ADMINISTRATION
     Route: 050
  12. KETAMINE [Concomitant]
     Active Substance: KETAMINE
     Indication: SEDATION
     Dosage: UNK
     Route: 065
  13. TRAMADOL. [Concomitant]
     Active Substance: TRAMADOL
     Indication: DYSKINESIA
     Dosage: 100 MILLIGRAM, QID
     Route: 065
  14. BORTEZOMIB. [Suspect]
     Active Substance: BORTEZOMIB
     Indication: ENCEPHALITIS AUTOIMMUNE
     Dosage: 1.3 MILLIGRAM/SQ. METER ON DAYS 1, 4, 8 AND 11 OF EACH CYCLE
     Route: 042
  15. IMMUNOGLOBULIN                     /07494701/ [Suspect]
     Active Substance: IMMUNE GLOBULIN NOS
     Indication: ENCEPHALITIS AUTOIMMUNE
     Dosage: 0.2 G/KG/DAY
     Route: 042
  16. TETRABENAZINE. [Suspect]
     Active Substance: TETRABENAZINE
     Indication: ENCEPHALITIS AUTOIMMUNE
     Dosage: 25 MILLIGRAM, TID
  17. LACOSAMIDE. [Suspect]
     Active Substance: LACOSAMIDE
     Indication: MOVEMENT DISORDER
  18. PERAMPANEL [Suspect]
     Active Substance: PERAMPANEL
     Indication: SEIZURE
     Dosage: FULL DOSAGE
     Route: 065
  19. LACOSAMIDE. [Suspect]
     Active Substance: LACOSAMIDE
     Indication: SEIZURE
     Dosage: FULL DOSAGE
     Route: 065
  20. PERAMPANEL [Suspect]
     Active Substance: PERAMPANEL
     Indication: MOVEMENT DISORDER
  21. LEVETIRACETAM. [Suspect]
     Active Substance: LEVETIRACETAM
     Indication: SEIZURE
     Dosage: FULL DOSAGE
     Route: 065
  22. CYCLOPHOSPHAMIDE. [Suspect]
     Active Substance: CYCLOPHOSPHAMIDE
     Indication: ENCEPHALITIS AUTOIMMUNE
     Dosage: 800 MILLIGRAM/SQ. METER
     Route: 042
  23. CLOBAZAM. [Suspect]
     Active Substance: CLOBAZAM
     Indication: MOVEMENT DISORDER
  24. PHENYTOIN. [Suspect]
     Active Substance: PHENYTOIN
     Indication: SEIZURE
     Dosage: FULL DOSAGE
     Route: 065
  25. RITUXIMAB. [Concomitant]
     Active Substance: RITUXIMAB
     Indication: ENCEPHALITIS AUTOIMMUNE
     Dosage: 1 GRAM TWO DOSES WERE ADMINISTERED
     Route: 042

REACTIONS (2)
  - Drug ineffective [Unknown]
  - Off label use [Unknown]
